FAERS Safety Report 6209601-1 (Version None)
Quarter: 2009Q2

REPORT INFORMATION
  Report Type: 
  Country: None (occurrence: None)
  Receive Date: 20090527
  Receipt Date: 20090512
  Transmission Date: 20091009
  Serious: Yes (Life-Threatening, Hospitalization, Other)
  Sender: FDA-Public Use
  Company Number: 1-18466245

PATIENT
  Age: 23 Year
  Sex: Female

DRUGS (3)
  1. LAMOTRIGINE TABLETS 100 MG [Suspect]
     Indication: INTENTIONAL OVERDOSE
     Dosage: 9.2 G, ONCE, ORAL
     Route: 048
  2. CHLORPHENIRAMINE - UNSPECIFIED [Suspect]
     Indication: INTENTIONAL OVERDOSE
     Dosage: 56 MG, ONCE, ORAL
     Route: 048
  3. CITALOPRAM HYDROBROMIDE [Suspect]
     Indication: INTENTIONAL OVERDOSE
     Dosage: 220 MG, ONCE, ORAL
     Route: 048

REACTIONS (9)
  - AGITATION [None]
  - ELECTROCARDIOGRAM QRS COMPLEX PROLONGED [None]
  - ELECTROCARDIOGRAM QT PROLONGED [None]
  - METABOLIC ACIDOSIS [None]
  - MULTIPLE DRUG OVERDOSE INTENTIONAL [None]
  - NYSTAGMUS [None]
  - PUPILLARY REFLEX IMPAIRED [None]
  - SINUS TACHYCARDIA [None]
  - TREMOR [None]
